FAERS Safety Report 7589545-3 (Version None)
Quarter: 2011Q3

REPORT INFORMATION
  Report Type: 
  Country: None (occurrence: None)
  Receive Date: 20110705
  Receipt Date: 20110701
  Transmission Date: 20111222
  Serious: Yes (Life-Threatening, Other)
  Sender: FDA-Public Use
  Company Number: GB-PFIZER INC-2011148650

PATIENT
  Age: 43 Year
  Sex: Male

DRUGS (2)
  1. VARENICLINE TARTRATE [Suspect]
     Dosage: 1 MG, UNK
     Dates: start: 20110101, end: 20110509
  2. VARENICLINE TARTRATE [Suspect]
     Indication: SMOKING CESSATION THERAPY
     Dosage: FROM STARTER PACK
     Route: 048
     Dates: start: 20110414, end: 20110101

REACTIONS (3)
  - MEMORY IMPAIRMENT [None]
  - CONFUSIONAL STATE [None]
  - SUICIDAL IDEATION [None]
